FAERS Safety Report 5641948-X (Version None)
Quarter: 2008Q1

REPORT INFORMATION
  Report Type: 
  Country: None (occurrence: None)
  Receive Date: 20080225
  Receipt Date: 20080211
  Transmission Date: 20080703
  Serious: Yes (Life-Threatening, Other)
  Sender: FDA-Public Use
  Company Number: SPV1-2008-00290

PATIENT
  Sex: Male

DRUGS (1)
  1. FOSRENOL [Suspect]

REACTIONS (1)
  - COMA [None]
